FAERS Safety Report 21076267 (Version 15)
Quarter: 2023Q2

REPORT INFORMATION
  Report Type: Report from Study
  Country: US (occurrence: None)
  Receive Date: 20220713
  Receipt Date: 20230413
  Transmission Date: 20230722
  Serious: Yes (Hospitalization)
  Sender: FDA-Public Use
  Company Number: US-Eisai Medical Research-EC-2022-118815

PATIENT
  Age: 67 Year
  Sex: Female
  Weight: 154 kg

DRUGS (20)
  1. LENVATINIB [Suspect]
     Active Substance: LENVATINIB
     Indication: Renal cell carcinoma
     Dosage: STARTING DOSE AT 20 MG, FLUCTUATED DOSAGE
     Route: 048
     Dates: start: 20220324, end: 20220705
  2. BELZUTIFAN [Suspect]
     Active Substance: BELZUTIFAN
     Indication: Renal cell carcinoma
     Dosage: STARTING DOSE AT 120 MG, FLUCTUATED DOSAGE
     Route: 048
     Dates: start: 20220324, end: 20220705
  3. ACETAMINOPHEN [Concomitant]
     Active Substance: ACETAMINOPHEN
     Dates: start: 20140402
  4. ALBUTEROL [Concomitant]
     Active Substance: ALBUTEROL
     Dates: start: 20220315, end: 20221123
  5. ARIMIDEX [Concomitant]
     Active Substance: ANASTROZOLE
     Dates: start: 20160128
  6. CALCIUM CARBONATE\CHOLECALCIFEROL [Concomitant]
     Active Substance: CALCIUM CARBONATE\CHOLECALCIFEROL
     Dates: start: 20210721
  7. COREG [Concomitant]
     Active Substance: CARVEDILOL
     Dates: start: 20201116, end: 20221017
  8. KLONOPIN [Concomitant]
     Active Substance: CLONAZEPAM
     Dates: start: 20220315
  9. XGEVA [Concomitant]
     Active Substance: DENOSUMAB
     Dates: start: 20171025
  10. LOMOTIL [Concomitant]
     Active Substance: ATROPINE SULFATE\DIPHENOXYLATE HYDROCHLORIDE
     Dates: start: 20201116
  11. COLACE [Concomitant]
     Active Substance: DOCUSATE SODIUM
     Dates: start: 20210721, end: 20221123
  12. REMERON [Concomitant]
     Active Substance: MIRTAZAPINE
     Dates: start: 20200213
  13. NITROSTAT [Concomitant]
     Active Substance: NITROGLYCERIN
     Dates: start: 20161214
  14. ZOFRAN [Concomitant]
     Active Substance: ONDANSETRON HYDROCHLORIDE
     Dates: start: 20180716, end: 20221123
  15. PERCOCET [Concomitant]
     Active Substance: ACETAMINOPHEN\OXYCODONE HYDROCHLORIDE
     Dates: start: 20190722
  16. PROTONIX [Concomitant]
     Active Substance: PANTOPRAZOLE SODIUM
     Dates: start: 20160921
  17. KLOR-CON [Concomitant]
     Active Substance: POTASSIUM CHLORIDE
     Dates: start: 20200629
  18. ZOLOFT [Concomitant]
     Active Substance: SERTRALINE HYDROCHLORIDE
     Dates: start: 20220315
  19. IMODIUM [Concomitant]
     Active Substance: LOPERAMIDE HYDROCHLORIDE
     Dates: start: 20220504
  20. DIAZEPAM [Concomitant]
     Active Substance: DIAZEPAM
     Dates: start: 20220615, end: 20220615

REACTIONS (1)
  - Cardiac failure [Recovered/Resolved]

NARRATIVE: CASE EVENT DATE: 20220628
